FAERS Safety Report 23032004 (Version 1)
Quarter: 2023Q4

REPORT INFORMATION
  Report Type: Spontaneous
  Country: CN (occurrence: CN)
  Receive Date: 20231005
  Receipt Date: 20231005
  Transmission Date: 20240110
  Serious: Yes (Hospitalization, Other)
  Sender: FDA-Public Use
  Company Number: None

PATIENT
  Age: 40 Year
  Sex: Female

DRUGS (4)
  1. CYCLOPHOSPHAMIDE [Suspect]
     Active Substance: CYCLOPHOSPHAMIDE
     Indication: Breast neoplasm
     Dosage: 1000 MG, ONE TIME IN ONE DAY, DILUTED WITH 250 ML OF SODIUM CHLORIDE (AT DARK AT 11: 55, FOURTH COUR
     Route: 041
     Dates: start: 20230916, end: 20230916
  2. SODIUM CHLORIDE [Suspect]
     Active Substance: SODIUM CHLORIDE
     Indication: Medication dilution
     Dosage: 250 ML, ONE TIME IN ONE DAY, USED TO DILUTE 1000 MG OF CYCLOPHOSPHAMIDE FOR INJECTION (AT DARK AT 11
     Route: 041
     Dates: start: 20230916, end: 20230916
  3. SODIUM CHLORIDE [Suspect]
     Active Substance: SODIUM CHLORIDE
     Dosage: 100 ML, ONE TIME IN ONE DAY, USED TO DILUTE 120 MG OF  DOCETAXEL INJECTION (AT DARK AT 10: 45, FOURT
     Route: 041
     Dates: start: 20230916, end: 20230916
  4. DOCETAXEL [Suspect]
     Active Substance: DOCETAXEL
     Indication: Breast neoplasm
     Dosage: 120 MG, ONE TIME IN ONE DAY, DILUTED WITH 100ML OF SODIUM CHLORIDE (AT DARK AT 10: 45, FOURTH COURSE
     Route: 041
     Dates: start: 20230916, end: 20230916

REACTIONS (2)
  - Myelosuppression [Recovering/Resolving]
  - White blood cell count decreased [Recovering/Resolving]

NARRATIVE: CASE EVENT DATE: 20230919
